FAERS Safety Report 15626682 (Version 8)
Quarter: 2019Q4

REPORT INFORMATION
  Report Type: Spontaneous
  Country: PL (occurrence: PL)
  Receive Date: 20181116
  Receipt Date: 20191015
  Transmission Date: 20200122
  Serious: Yes (Death, Other)
  Sender: FDA-Public Use
  Company Number: PL-PFIZER INC-2018465097

PATIENT
  Age: 45 Year
  Sex: Male

DRUGS (28)
  1. PREDNISOLONE. [Suspect]
     Active Substance: PREDNISOLONE
     Dosage: 15 MG, UNK
     Route: 048
  2. HUMAN ALBUMIN [Suspect]
     Active Substance: ALBUMIN HUMAN
     Indication: PRODUCT USED FOR UNKNOWN INDICATION
     Dosage: UNK, 1X/DAY (200-300 ML)
     Route: 065
  3. ASPIRIN. [Suspect]
     Active Substance: ASPIRIN
     Indication: PRODUCT USED FOR UNKNOWN INDICATION
     Dosage: UNK, 1X/DAY (2 G TO 4 G)
     Route: 048
  4. VORICONAZOLE. [Suspect]
     Active Substance: VORICONAZOLE
     Dosage: UNK
     Route: 065
  5. ALPRAZOLAM. [Suspect]
     Active Substance: ALPRAZOLAM
     Indication: PSYCHIATRIC SYMPTOM
     Dosage: 0.25 MG, UNKNOWN FREQ.
  6. TACROLIMUS. [Suspect]
     Active Substance: TACROLIMUS
     Dosage: CONCENTRATION 10-12 NG/ML, UNKNOWN FREQ.
  7. HYDROCORTISONE. [Suspect]
     Active Substance: HYDROCORTISONE
     Indication: PRODUCT USED FOR UNKNOWN INDICATION
     Dosage: 300 MG, 1X/DAY
     Route: 042
  8. METRONIDAZOLE. [Suspect]
     Active Substance: METRONIDAZOLE
     Indication: PRODUCT USED FOR UNKNOWN INDICATION
     Dosage: 1.5 G, 1X/DAY
     Route: 048
  9. METHYLPREDNISOLONE SODIUM SUCCINATE. [Suspect]
     Active Substance: METHYLPREDNISOLONE SODIUM SUCCINATE
     Dosage: DOSAGE FORM: UNSPECIFIED
     Route: 042
  10. FLUCONAZOLE. [Suspect]
     Active Substance: FLUCONAZOLE
     Indication: PROPHYLAXIS
     Dosage: CONCENTRATION} 15 NG/ML, UNKNOWN FREQ.
  11. ANIDULAFUNGIN [Suspect]
     Active Substance: ANIDULAFUNGIN
     Dosage: 100 MG, 1X/DAY
     Route: 042
  12. TACROLIMUS. [Suspect]
     Active Substance: TACROLIMUS
     Dosage: UNSPECIFIED, MORE THAN 15 NG/ML
     Route: 065
  13. AZATHIOPRINE. [Suspect]
     Active Substance: AZATHIOPRINE
     Indication: PRODUCT USED FOR UNKNOWN INDICATION
     Dosage: 50 MG, UNK
  14. METHYLPREDNISOLONE SODIUM SUCCINATE. [Suspect]
     Active Substance: METHYLPREDNISOLONE SODIUM SUCCINATE
     Dosage: 250 MG, 1X/DAY
     Route: 042
  15. VANCOMYCIN [Suspect]
     Active Substance: VANCOMYCIN
     Indication: PROPHYLAXIS
     Dosage: UNK
  16. BASILIXIMAB [Suspect]
     Active Substance: BASILIXIMAB
     Indication: PRODUCT USED FOR UNKNOWN INDICATION
     Dosage: 20 MG, DAY 1 AND DAY 4
     Route: 065
  17. MYCOPHENOLATE MOFETIL. [Suspect]
     Active Substance: MYCOPHENOLATE MOFETIL
     Indication: PRODUCT USED FOR UNKNOWN INDICATION
     Dosage: 1 G, 1X/DAY
     Route: 065
  18. CELLCEPT [Suspect]
     Active Substance: MYCOPHENOLATE MOFETIL\MYCOPHENOLATE MOFETIL HYDROCHLORIDE
     Indication: LIVER TRANSPLANT
     Dosage: 1 G, DAILY
     Route: 065
  19. METHYLPREDNISOLONE. [Suspect]
     Active Substance: METHYLPREDNISOLONE
     Dosage: UNSPECIFIED
  20. QUETIAPINE. [Suspect]
     Active Substance: QUETIAPINE
     Indication: PSYCHIATRIC SYMPTOM
     Dosage: 25 MG, UNK
     Route: 048
  21. CIPROFLOXACIN. [Suspect]
     Active Substance: CIPROFLOXACIN
     Indication: PRODUCT USED FOR UNKNOWN INDICATION
     Dosage: 1 G, 1X/DAY
     Route: 065
  22. METHYLPREDNISOLONE SODIUM SUCCINATE. [Suspect]
     Active Substance: METHYLPREDNISOLONE SODIUM SUCCINATE
     Dosage: 1 G (PULSES 1 G FOR 3 DAYS) UNKNOWN FREQ.
     Route: 042
  23. ANIDULAFUNGIN [Suspect]
     Active Substance: ANIDULAFUNGIN
     Dosage: 200 MG, ONCE DAILY (FIRST DAY)
     Route: 042
  24. MICAFUNGIN. [Suspect]
     Active Substance: MICAFUNGIN SODIUM
     Indication: PRODUCT USED FOR UNKNOWN INDICATION
     Dosage: CONTINUOUS INFUSION
     Route: 042
  25. RIFAXIMIN. [Suspect]
     Active Substance: RIFAXIMIN
     Indication: PRODUCT USED FOR UNKNOWN INDICATION
     Dosage: 1.2 G, 1X/DAY
     Route: 048
  26. TACROLIMUS. [Suspect]
     Active Substance: TACROLIMUS
     Indication: PRODUCT USED FOR UNKNOWN INDICATION
     Dosage: MAXIMUM 5 NG/ML, UNKNOWN FREQ.
     Route: 065
  27. BUDESONIDE. [Suspect]
     Active Substance: BUDESONIDE
     Indication: PRODUCT USED FOR UNKNOWN INDICATION
     Dosage: 9 MG, UNK
     Route: 048
  28. IMIPENEM [Suspect]
     Active Substance: IMIPENEM
     Indication: PROPHYLAXIS
     Dosage: UNK

REACTIONS (18)
  - Graft versus host disease [Fatal]
  - Pneumonia [Fatal]
  - Vasculitis [Fatal]
  - Nervous system disorder [Fatal]
  - Skin necrosis [Fatal]
  - Rash erythematous [Fatal]
  - Candida infection [Fatal]
  - Neurological symptom [Fatal]
  - Multiple organ dysfunction syndrome [Fatal]
  - Renal failure [Fatal]
  - Psychiatric symptom [Unknown]
  - Neutropenia [Unknown]
  - Diarrhoea [Fatal]
  - Disseminated intravascular coagulation [Fatal]
  - Functional gastrointestinal disorder [Fatal]
  - Immunosuppressant drug level increased [Fatal]
  - Leukopenia [Unknown]
  - Anaemia [Unknown]
